FAERS Safety Report 23628943 (Version 2)
Quarter: 2024Q2

REPORT INFORMATION
  Report Type: Spontaneous
  Country: US (occurrence: US)
  Receive Date: 20240313
  Receipt Date: 20240419
  Transmission Date: 20240716
  Serious: No
  Sender: FDA-Public Use
  Company Number: US-Calliditas-2024CAL00376

PATIENT
  Age: 30 Year
  Sex: Female

DRUGS (2)
  1. TARPEYO [Suspect]
     Active Substance: BUDESONIDE
     Indication: IgA nephropathy
     Dosage: 16MG (4MG CAPSULES) ONCE DAILY
     Route: 048
     Dates: start: 20240215
  2. VYVANSE [Concomitant]
     Active Substance: LISDEXAMFETAMINE DIMESYLATE

REACTIONS (5)
  - Vision blurred [Recovered/Resolved]
  - Nausea [Not Recovered/Not Resolved]
  - Heart rate increased [Recovered/Resolved]
  - Anxiety [Unknown]
  - Balance disorder [Recovered/Resolved]

NARRATIVE: CASE EVENT DATE: 20240201
